FAERS Safety Report 18519404 (Version 1)
Quarter: 2020Q4

REPORT INFORMATION
  Report Type: Other
  Country: CA (occurrence: CA)
  Receive Date: 20201119
  Receipt Date: 20201119
  Transmission Date: 20210114
  Serious: Yes (Other)
  Sender: FDA-Public Use
  Company Number: CA-CELLTRION INC.-2020CA031410

PATIENT

DRUGS (6)
  1. PROGESTERONE. [Concomitant]
     Active Substance: PROGESTERONE
  2. VITAMIN C [Concomitant]
     Active Substance: ASCORBIC ACID
  3. ESTRADIOL. [Concomitant]
     Active Substance: ESTRADIOL
  4. RITUXIMAB (UNKNOWN) [Suspect]
     Active Substance: RITUXIMAB
     Indication: SPLENOMEGALY
     Dosage: 618 MG, 1 EVERY 1 WEEKS
     Route: 041
  5. VITAMIN D NOS [Concomitant]
     Active Substance: VITAMIN D NOS
  6. RITUXIMAB (UNKNOWN) [Suspect]
     Active Substance: RITUXIMAB
     Indication: SPLENIC MARGINAL ZONE LYMPHOMA

REACTIONS (7)
  - Dyspnoea [Unknown]
  - Febrile neutropenia [Unknown]
  - Off label use [Unknown]
  - Hypotension [Unknown]
  - Progressive multifocal leukoencephalopathy [Unknown]
  - Tachycardia [Unknown]
  - Abdominal discomfort [Unknown]
